FAERS Safety Report 7246753-9 (Version None)
Quarter: 2011Q1

REPORT INFORMATION
  Report Type: 
  Country: None (occurrence: None)
  Receive Date: 20110127
  Receipt Date: 20110119
  Transmission Date: 20110831
  Serious: Yes (Other)
  Sender: FDA-Public Use
  Company Number: US-JNJFOC-20110100672

PATIENT
  Sex: Male

DRUGS (6)
  1. CILOSTAZOL [Concomitant]
     Indication: CARDIOVASCULAR DISORDER
     Route: 048
  2. FLOMAX [Concomitant]
     Indication: PROSTATOMEGALY
     Route: 048
  3. COMBIVENT [Concomitant]
     Indication: CHRONIC OBSTRUCTIVE PULMONARY DISEASE
     Route: 055
  4. LEVAQUIN [Suspect]
     Indication: POST PROCEDURAL INFECTION
     Route: 048
  5. PRANDIN [Concomitant]
     Indication: DIABETES MELLITUS
     Route: 048
  6. VYTORIN [Concomitant]
     Indication: BLOOD CHOLESTEROL ABNORMAL
     Route: 048

REACTIONS (5)
  - COLITIS [None]
  - EATING DISORDER [None]
  - HALLUCINATION [None]
  - FAECAL INCONTINENCE [None]
  - ABNORMAL LOSS OF WEIGHT [None]
